FAERS Safety Report 22611633 (Version 1)
Quarter: 2023Q2

REPORT INFORMATION
  Report Type: Spontaneous
  Country: US (occurrence: US)
  Receive Date: 20230616
  Receipt Date: 20230616
  Transmission Date: 20230722
  Serious: Yes (Hospitalization)
  Sender: FDA-Public Use
  Company Number: US-BRISTOL-MYERS SQUIBB COMPANY-2023-085264

PATIENT
  Age: 76 Year
  Sex: Male
  Weight: 119.74 kg

DRUGS (2)
  1. OPDIVO [Suspect]
     Active Substance: NIVOLUMAB
     Indication: Product used for unknown indication
     Dosage: DOSE : 359 MG OPDIVO | 120 MG YERVOY;     FREQ : OPDIVO Q 21 DAYS | YERVOY Q 42 DAY
     Route: 042
  2. YERVOY [Suspect]
     Active Substance: IPILIMUMAB
     Indication: Product used for unknown indication
     Dosage: DOSE : 359 MG OPDIVO | 120 MG YERVOY;     FREQ : OPDIVO Q 21 DAYS | YERVOY Q 42 DAY
     Route: 042

REACTIONS (1)
  - Adverse event [Unknown]
